FAERS Safety Report 8448134-9 (Version None)
Quarter: 2012Q2

REPORT INFORMATION
  Report Type: 
  Country: None (occurrence: None)
  Receive Date: 20120612
  Receipt Date: 20120601
  Transmission Date: 20120825
  Serious: Yes (Hospitalization)
  Sender: FDA-Public Use
  Company Number: DSA_57579_2012

PATIENT
  Age: 62 Year
  Sex: Male

DRUGS (5)
  1. ENALAPRIL MALEATE [Concomitant]
  2. DILTIAZEM HYDROCHOLORIDE [Suspect]
     Indication: PRODUCT USED FOR UNKNOWN INDICATION
     Dosage: (240 MG QD)
  3. RANOLAZINE [Suspect]
     Indication: PRODUCT USED FOR UNKNOWN INDICATION
     Dosage: (500 MG BID), (1000 MG BID)
  4. TACROLIMUS [Suspect]
     Indication: PRODUCT USED FOR UNKNOWN INDICATION
     Dosage: (DF)
  5. PREDNISONE TAB [Concomitant]

REACTIONS (9)
  - TREMOR [None]
  - URINE OUTPUT DECREASED [None]
  - SINUS BRADYCARDIA [None]
  - BRADYCARDIA [None]
  - FATIGUE [None]
  - DECREASED APPETITE [None]
  - LETHARGY [None]
  - RESPIRATORY RATE DECREASED [None]
  - BLOOD CREATININE INCREASED [None]
